FAERS Safety Report 19589021 (Version 1)
Quarter: 2021Q3

REPORT INFORMATION
  Report Type: Other
  Country: US (occurrence: US)
  Receive Date: 20210721
  Receipt Date: 20210721
  Transmission Date: 20211014
  Serious: Yes (Death)
  Sender: FDA-Public Use
  Company Number: US-ROCHE-2869391

PATIENT
  Sex: Female

DRUGS (1)
  1. OCREVUS [Suspect]
     Active Substance: OCRELIZUMAB
     Indication: RELAPSING MULTIPLE SCLEROSIS
     Dosage: 300 MG DAY 1 AND DAY 15, 600 MG EVERY 6 MONTHS
     Route: 065
     Dates: start: 20181212, end: 20210219

REACTIONS (1)
  - Abdominal abscess [Fatal]
